FAERS Safety Report 12204806 (Version 2)
Quarter: 2018Q4

REPORT INFORMATION
  Report Type: Spontaneous
  Country: JP (occurrence: JP)
  Receive Date: 20160323
  Receipt Date: 20181011
  Transmission Date: 20190204
  Serious: No
  Sender: FDA-Public Use
  Company Number: JP-PFIZER INC-2016160337

PATIENT
  Age: 15 Year
  Sex: Female

DRUGS (2)
  1. METHYLPREDNISOLONE. [Suspect]
     Active Substance: METHYLPREDNISOLONE
     Indication: PLATELET COUNT DECREASED
     Dosage: 1 G FOR 3 DAYS FOR 2 COURSES
  2. PREDNISOLONE. [Concomitant]
     Active Substance: PREDNISOLONE
     Indication: IMMUNE THROMBOCYTOPENIC PURPURA
     Dosage: 50 MG, DAILY (1 MG/KG/DAY)
     Route: 048

REACTIONS (4)
  - Hypertrichosis [Unknown]
  - Central obesity [Unknown]
  - Cushingoid [Unknown]
  - Blood pressure increased [Unknown]
